FAERS Safety Report 23566146 (Version 1)
Quarter: 2024Q1

REPORT INFORMATION
  Report Type: Spontaneous
  Country: US (occurrence: None)
  Receive Date: 20240226
  Receipt Date: 20240226
  Transmission Date: 20240409
  Serious: Yes (Hospitalization)
  Sender: FDA-Public Use
  Company Number: None

PATIENT
  Sex: Female

DRUGS (1)
  1. COSENTYX [Suspect]
     Active Substance: SECUKINUMAB
     Indication: Psoriatic arthropathy
     Dosage: 300MG EVERY 4 WEEKS SUBCUTANEOUSLY
     Route: 058
     Dates: start: 202402

REACTIONS (5)
  - COVID-19 [None]
  - Asthma [None]
  - Psoriasis [None]
  - Stress [None]
  - Therapy interrupted [None]
